FAERS Safety Report 4947052-8 (Version None)
Quarter: 2006Q1

REPORT INFORMATION
  Report Type: 
  Country: None (occurrence: None)
  Receive Date: 20060314
  Receipt Date: 20060228
  Transmission Date: 20060701
  Serious: Yes (Other)
  Sender: FDA-Public Use
  Company Number: USA-2006-0023450

PATIENT
  Sex: Female
  Weight: 43.5 kg

DRUGS (3)
  1. OXYCONTIN [Suspect]
     Indication: METASTATIC PAIN
     Dosage: SEE IMAGE
     Dates: start: 20050601, end: 20051001
  2. OXYCONTIN [Suspect]
     Indication: METASTATIC PAIN
     Dosage: SEE IMAGE
     Dates: start: 20060216
  3. OXYCODONE HCL [Concomitant]

REACTIONS (4)
  - DRUG INEFFECTIVE [None]
  - DRUG INTOLERANCE [None]
  - METASTASES TO CENTRAL NERVOUS SYSTEM [None]
  - METASTASES TO MOUTH [None]
